FAERS Safety Report 9448031 (Version 1)
Quarter: 2013Q3

REPORT INFORMATION
  Report Type: Spontaneous
  Country: US (occurrence: US)
  Receive Date: 20130808
  Receipt Date: 20130808
  Transmission Date: 20140515
  Serious: Yes (Other)
  Sender: FDA-Public Use
  Company Number: US-009507513-1207USA011994

PATIENT
  Age: 8 Year
  Sex: Female
  Weight: 27.22 kg

DRUGS (1)
  1. DULERA [Suspect]
     Indication: ASTHMA
     Dosage: 2 PUFFS, BID
     Route: 055
     Dates: start: 20120328, end: 20120401

REACTIONS (1)
  - Swelling face [Unknown]
